FAERS Safety Report 23436445 (Version 1)
Quarter: 2024Q1

REPORT INFORMATION
  Report Type: Other
  Country: US (occurrence: US)
  Receive Date: 20240124
  Receipt Date: 20240124
  Transmission Date: 20240410
  Serious: Yes (Other)
  Sender: FDA-Public Use
  Company Number: US-ALVOGEN-2024092899

PATIENT
  Sex: Male

DRUGS (10)
  1. FELBAMATE [Suspect]
     Active Substance: FELBAMATE
     Indication: Epilepsy
     Dosage: HIGH- DOSE ANTICONVULSANT MEDICATIONS
  2. FELBAMATE [Suspect]
     Active Substance: FELBAMATE
     Indication: Epilepsy
     Dosage: 1500 MG (62 MG/KG/DAY)
  3. FELBAMATE [Suspect]
     Active Substance: FELBAMATE
     Indication: Epilepsy
     Dosage: 300 MG (10 MG/KG/DAY)?TO BETTER CONTROL HIS SEIZURE FREQUENCY.
  4. FELBAMATE [Suspect]
     Active Substance: FELBAMATE
     Indication: Epilepsy
     Dosage: 600 MG (21 MG/KG/DAY)?TO BETTER CONTROL HIS SEIZURE FREQUENCY.
  5. TOPIRAMATE [Suspect]
     Active Substance: TOPIRAMATE
     Indication: Epilepsy
     Dosage: HIGH- DOSE ANTICONVULSANT MEDICATIONS, SINCE YEAR 1
     Dates: start: 2014
  6. LACOSAMIDE [Suspect]
     Active Substance: LACOSAMIDE
     Indication: Epilepsy
     Dosage: HIGH- DOSE ANTICONVULSANT MEDICATIONS, SINCE YEAR 1
  7. RUFINAMIDE [Suspect]
     Active Substance: RUFINAMIDE
     Indication: Epilepsy
     Dosage: HIGH- DOSE ANTICONVULSANT MEDICATIONS, SINCE YEAR 1
  8. RUFINAMIDE [Suspect]
     Active Substance: RUFINAMIDE
     Indication: Epilepsy
     Dosage: TITRATING UP
  9. ZONISAMIDE [Suspect]
     Active Substance: ZONISAMIDE
     Indication: Epilepsy
     Dosage: HIGH- DOSE ANTICONVULSANT MEDICATIONS SINCE YEAR 1
     Dates: start: 2014
  10. ZONISAMIDE [Suspect]
     Active Substance: ZONISAMIDE
     Indication: Epilepsy
     Dosage: WEANING-OFF

REACTIONS (2)
  - Calculus urinary [Unknown]
  - Hydronephrosis [Unknown]
